FAERS Safety Report 6582822-4 (Version None)
Quarter: 2010Q1

REPORT INFORMATION
  Report Type: 
  Country: None (occurrence: None)
  Receive Date: 20100216
  Receipt Date: 20100204
  Transmission Date: 20100710
  Serious: Yes (Hospitalization)
  Sender: FDA-Public Use
  Company Number: IT-PFIZER INC-2010015877

PATIENT
  Age: 69 Year
  Sex: Female

DRUGS (3)
  1. ZITHROMAX [Suspect]
     Indication: INFLUENZA
     Dosage: 600 MG TOTAL
     Route: 048
     Dates: start: 20090904, end: 20090904
  2. WARFARIN SODIUM [Concomitant]
     Dosage: 5 MG
     Route: 048
  3. MODURETIC 5-50 [Concomitant]
     Dosage: 55 MG
     Route: 048

REACTIONS (3)
  - BRADYCARDIA [None]
  - HYPERPYREXIA [None]
  - INFLUENZA [None]
